FAERS Safety Report 8162471-7 (Version None)
Quarter: 2012Q1

REPORT INFORMATION
  Report Type: 
  Country: None (occurrence: None)
  Receive Date: 20120224
  Receipt Date: 20120224
  Transmission Date: 20120608
  Serious: Yes (Other)
  Sender: FDA-Public Use
  Company Number: None

PATIENT
  Age: 14 Month
  Sex: Male
  Weight: 11 kg

DRUGS (3)
  1. ADVATE [Suspect]
     Indication: POST PROCEDURAL HAEMORRHAGE
     Dosage: 363 INTERNATIONAL UNITS
     Route: 040
     Dates: start: 20110420, end: 20110421
  2. ADVATE [Concomitant]
     Indication: POST PROCEDURAL HAEMORRHAGE
     Dosage: 363 INTERNATIONAL UNITS
     Route: 040
     Dates: start: 20111130, end: 20111130
  3. ADVATE [Concomitant]
     Indication: LACERATION
     Dosage: 363 INTERNATIONAL UNITS
     Route: 040
     Dates: start: 20111130, end: 20111130

REACTIONS (2)
  - FACTOR VIII INHIBITION [None]
  - POST PROCEDURAL HAEMORRHAGE [None]
